FAERS Safety Report 18711258 (Version 1)
Quarter: 2021Q1

REPORT INFORMATION
  Report Type: Spontaneous
  Country: US (occurrence: US)
  Receive Date: 20210106
  Receipt Date: 20210106
  Transmission Date: 20210419
  Serious: No
  Sender: FDA-Public Use
  Company Number: None

PATIENT
  Age: 30 Year
  Sex: Female

DRUGS (7)
  1. TROKENDI [Concomitant]
     Active Substance: TOPIRAMATE
     Dates: start: 20200411
  2. LAMOTRIGINE. [Concomitant]
     Active Substance: LAMOTRIGINE
     Dates: start: 20190411
  3. AJOVY [Concomitant]
     Active Substance: FREMANEZUMAB-VFRM
     Dates: start: 20201012
  4. DESVENLAFAX [Concomitant]
     Dates: start: 20200904
  5. DIMETHYL FUMARATE [Suspect]
     Active Substance: DIMETHYL FUMARATE
     Indication: MULTIPLE SCLEROSIS
     Route: 048
     Dates: start: 20191014
  6. UBRELVY [Concomitant]
     Active Substance: UBROGEPANT
     Dates: start: 20200921
  7. CLONAZEPAM. [Concomitant]
     Active Substance: CLONAZEPAM
     Dates: start: 20200411

REACTIONS (1)
  - Influenza like illness [None]

NARRATIVE: CASE EVENT DATE: 20210105
